FAERS Safety Report 6520314-9 (Version None)
Quarter: 2009Q4

REPORT INFORMATION
  Report Type: 
  Country: None (occurrence: None)
  Receive Date: 20091229
  Receipt Date: 20091214
  Transmission Date: 20100525
  Serious: Yes (Other)
  Sender: FDA-Public Use
  Company Number: ES-PFIZER INC-2009309447

PATIENT
  Age: 54 Year
  Sex: Female

DRUGS (1)
  1. SUTENT [Suspect]
     Indication: RENAL CANCER STAGE IV
     Dosage: 50 MG, UNK
     Dates: start: 20090120, end: 20090203

REACTIONS (3)
  - HEPATIC FUNCTION ABNORMAL [None]
  - HYPOTENSION [None]
  - ORAL PAIN [None]
